FAERS Safety Report 5074501-X (Version None)
Quarter: 2006Q3

REPORT INFORMATION
  Report Type: 
  Country: None (occurrence: None)
  Receive Date: 20060803
  Receipt Date: 20060727
  Transmission Date: 20061208
  Serious: Yes (Other)
  Sender: FDA-Public Use
  Company Number: 227274

PATIENT

DRUGS (7)
  1. XOLAIR [Suspect]
     Indication: ASTHMA
     Dosage: 375 MG, Q2W,
     Dates: start: 20060324
  2. ADVAIR DISKUS 100/50 [Concomitant]
  3. ALLEGRA [Concomitant]
  4. SINGULAIR [Concomitant]
  5. ALBUTEROL (ALBUTEROL/ALBUTEROL SULFATE) [Concomitant]
  6. RHINOCORT [Concomitant]
  7. ASMANEX TWISTHALER [Concomitant]

REACTIONS (3)
  - ERYTHEMA MULTIFORME [None]
  - PHARYNGOLARYNGEAL PAIN [None]
  - SERUM SICKNESS [None]
